FAERS Safety Report 9997205 (Version 1)
Quarter: 2014Q1

REPORT INFORMATION
  Report Type: Spontaneous
  Country: US (occurrence: None)
  Receive Date: 20140218
  Receipt Date: 20140218
  Transmission Date: 20141002
  Serious: Yes (Other)
  Sender: FDA-Public Use
  Company Number: 1000052280

PATIENT
  Age: 55 Year
  Sex: Male

DRUGS (4)
  1. VIIBRYD (VILAZODONE HYDROCHLORIDE) (10 MILLIGRAM, TABLETS) [Suspect]
     Indication: DEPRESSION
     Dosage: 1 IN 1 D
     Route: 048
     Dates: start: 20131115, end: 20131121
  2. VIIBRYD (VILAZODONE HYDROCHLORIDE) (20 MILLIGRAM, TABLET) [Suspect]
     Indication: DEPRESSION
     Dosage: 1 IN 1 D
     Route: 048
     Dates: start: 20131122, end: 201311
  3. VIIBRYD (VILAZODONE HYDROCHLORIDE) (TABLETS) [Suspect]
     Indication: DEPRESSION
     Dosage: 1 IN 1 D
     Dates: start: 201311, end: 201312
  4. THYROID MEDICATION NOS (THYROID MEDICATION NOS) (THYROID MEDICATION NOS) [Concomitant]

REACTIONS (13)
  - Flushing [None]
  - Chest discomfort [None]
  - Restlessness [None]
  - Fatigue [None]
  - Asthenia [None]
  - Feeling cold [None]
  - Insomnia [None]
  - Nausea [None]
  - Feeling abnormal [None]
  - Sexual dysfunction [None]
  - Dizziness [None]
  - Musculoskeletal discomfort [None]
  - Vertigo [None]
